FAERS Safety Report 9215040 (Version 1)
Quarter: 2013Q2

REPORT INFORMATION
  Report Type: Spontaneous
  Country: DK (occurrence: DK)
  Receive Date: 20130405
  Receipt Date: 20130405
  Transmission Date: 20140414
  Serious: Yes (Disabling)
  Sender: FDA-Public Use
  Company Number: DK-ASTRAZENECA-2013SE20454

PATIENT
  Age: 84 Year
  Sex: Male

DRUGS (7)
  1. BRILIQUE [Suspect]
     Indication: THROMBOSIS PROPHYLAXIS
     Route: 048
     Dates: start: 20120623, end: 20130107
  2. BRILIQUE [Suspect]
     Indication: ACUTE MYOCARDIAL INFARCTION
     Route: 048
     Dates: start: 20120623, end: 20130107
  3. PANTOPRAZOLE [Concomitant]
     Indication: PRODUCT USED FOR UNKNOWN INDICATION
  4. MIRTAZAPINE [Concomitant]
     Indication: PRODUCT USED FOR UNKNOWN INDICATION
  5. HJERDYL [Concomitant]
     Indication: PRODUCT USED FOR UNKNOWN INDICATION
  6. UNIKALK [Concomitant]
  7. VITAMIN D [Concomitant]

REACTIONS (6)
  - Neuropathy peripheral [Unknown]
  - Feeling cold [Unknown]
  - Sensory disturbance [Unknown]
  - Decreased vibratory sense [Unknown]
  - Paraesthesia [Unknown]
  - Paraesthesia [Unknown]
